FAERS Safety Report 4704680-2 (Version None)
Quarter: 2005Q2

REPORT INFORMATION
  Report Type: 
  Country: None (occurrence: None)
  Receive Date: 20050630
  Receipt Date: 20050617
  Transmission Date: 20051028
  Serious: Yes (Other)
  Sender: FDA-Public Use
  Company Number: 2005089779

PATIENT
  Sex: Male
  Weight: 60.3284 kg

DRUGS (3)
  1. ANTIVERT [Suspect]
     Indication: VERTIGO
     Dosage: (3 IN 1 D), ORAL
     Route: 048
  2. MECLIZINE [Suspect]
     Indication: VERTIGO
     Dosage: 50 MG (25 MG, 2 IN 1 D), ORAL
     Route: 048
  3. LANOXIN [Concomitant]

REACTIONS (2)
  - ALOPECIA [None]
  - MITRAL VALVE PROLAPSE [None]
